FAERS Safety Report 5559298-9 (Version None)
Quarter: 2007Q4

REPORT INFORMATION
  Report Type: 
  Country: None (occurrence: None)
  Receive Date: 20071214
  Receipt Date: 20070920
  Transmission Date: 20080405
  Serious: No
  Sender: FDA-Public Use
  Company Number: US-ABBOTT-07P-163-0418759-00

PATIENT
  Sex: Female
  Weight: 86.26 kg

DRUGS (5)
  1. HUMIRA [Suspect]
     Indication: CROHN'S DISEASE
     Route: 058
     Dates: start: 20060701
  2. HUMIRA [Suspect]
     Dosage: SYRINGE
     Route: 058
     Dates: start: 20050731, end: 20050801
  3. HUMIRA [Suspect]
     Dosage: SYRINGE
     Route: 058
     Dates: start: 20050801, end: 20060701
  4. HYDROXYZINE [Concomitant]
     Indication: PROPHYLAXIS
     Dosage: 20MG WEEKLY WITH EACH HUMIRA INJECTION
     Route: 048
  5. HYDROXYZINE [Concomitant]
     Indication: ADVERSE DRUG REACTION

REACTIONS (2)
  - ACCIDENTAL EXPOSURE [None]
  - SINUSITIS [None]
